FAERS Safety Report 5090290-7 (Version None)
Quarter: 2006Q3

REPORT INFORMATION
  Report Type: 
  Country: None (occurrence: None)
  Receive Date: 20060828
  Receipt Date: 20060707
  Transmission Date: 20061208
  Serious: No
  Sender: FDA-Public Use
  Company Number: US-GLAXOSMITHKLINE-A0611463A

PATIENT
  Age: 31 Year
  Sex: Female

DRUGS (2)
  1. WELLBUTRIN XL [Suspect]
     Indication: ATTENTION DEFICIT/HYPERACTIVITY DISORDER
     Dosage: 150MG PER DAY
     Route: 048
     Dates: start: 20060621
  2. NO CONCURRENT MEDICATION [Concomitant]

REACTIONS (4)
  - DIZZINESS [None]
  - INSOMNIA [None]
  - NODULE [None]
  - PHARYNGOLARYNGEAL PAIN [None]
